FAERS Safety Report 9405737 (Version 1)
Quarter: 2013Q3

REPORT INFORMATION
  Report Type: Spontaneous
  Country: US (occurrence: US)
  Receive Date: 20130717
  Receipt Date: 20130717
  Transmission Date: 20140515
  Serious: Yes (Other)
  Sender: FDA-Public Use
  Company Number: US-ASTRAZENECA-2013SE52263

PATIENT
  Age: 83 Year
  Sex: Female
  Weight: 78.5 kg

DRUGS (9)
  1. ENTOCORT EC [Suspect]
     Indication: DIARRHOEA
     Route: 048
     Dates: start: 2003, end: 20120822
  2. ENTOCORT EC [Suspect]
     Indication: DIARRHOEA
     Dosage: 3 MG AS REQUIRED, GENERIC
     Route: 048
     Dates: start: 20120823, end: 201209
  3. ENTOCORT EC [Suspect]
     Indication: DIARRHOEA
     Route: 048
     Dates: start: 201209
  4. ASPIRIN [Concomitant]
     Route: 048
  5. COUMADIN [Concomitant]
     Indication: THROMBOSIS
     Route: 048
     Dates: start: 2008
  6. PRAVASTATIN [Concomitant]
     Indication: BLOOD CHOLESTEROL ABNORMAL
     Route: 048
     Dates: start: 2012
  7. DIGOXIN [Concomitant]
     Indication: HEART RATE IRREGULAR
     Route: 048
     Dates: start: 2011
  8. SERTRALINE [Concomitant]
     Indication: DEPRESSION
     Route: 048
     Dates: start: 2011
  9. DILTIAZEM [Concomitant]
     Indication: BLOOD PRESSURE ABNORMAL
     Route: 048
     Dates: start: 2011

REACTIONS (7)
  - Thrombosis [Unknown]
  - Aortic aneurysm [Unknown]
  - Coronary artery disease [Unknown]
  - Atrial fibrillation [Unknown]
  - Off label use [Unknown]
  - Off label use [Unknown]
  - Drug ineffective for unapproved indication [Unknown]
